FAERS Safety Report 6392116-8 (Version None)
Quarter: 2009Q4

REPORT INFORMATION
  Report Type: 
  Country: None (occurrence: None)
  Receive Date: 20091007
  Receipt Date: 20090923
  Transmission Date: 20100525
  Serious: Yes (Other)
  Sender: FDA-Public Use
  Company Number: US-ELI_LILLY_AND_COMPANY-US200909005965

PATIENT
  Sex: Female

DRUGS (3)
  1. EFFIENT [Suspect]
     Indication: ACUTE CORONARY SYNDROME
     Dosage: UNK, UNK
     Route: 048
  2. REOPRO [Concomitant]
  3. HEPARIN [Concomitant]

REACTIONS (1)
  - CORONARY ARTERY OCCLUSION [None]
